FAERS Safety Report 8846235 (Version 1)
Quarter: 2012Q4

REPORT INFORMATION
  Report Type: 
  Country: GB (occurrence: GB)
  Receive Date: 20121017
  Receipt Date: 20121017
  Transmission Date: 20130627
  Serious: Yes (Other)
  Sender: FDA-Public Use
  Company Number: PHHY2012GB089910

PATIENT
  Age: 87 Year
  Sex: Female

DRUGS (2)
  1. LOSARTAN POTASSIUM [Suspect]
     Indication: BLOOD PRESSURE
     Route: 048
     Dates: start: 20120923, end: 20120926
  2. ANTIASTHMATICS [Concomitant]

REACTIONS (2)
  - Dysphagia [Not Recovered/Not Resolved]
  - Odynophagia [Not Recovered/Not Resolved]
